FAERS Safety Report 13478057 (Version 3)
Quarter: 2017Q3

REPORT INFORMATION
  Report Type: Spontaneous
  Country: KR (occurrence: KR)
  Receive Date: 20170425
  Receipt Date: 20170717
  Transmission Date: 20171127
  Serious: Yes (Other)
  Sender: FDA-Public Use
  Company Number: KR-009507513-1704KOR011652

PATIENT
  Age: 70 Year
  Sex: Female
  Weight: 55.2 kg

DRUGS (22)
  1. CISPLATIN. [Concomitant]
     Active Substance: CISPLATIN
     Indication: CHEMOTHERAPY
     Dosage: 100 MG, ONCE (CYCLE 1)
     Route: 042
     Dates: start: 20160615, end: 20160615
  2. CISPLATIN. [Concomitant]
     Active Substance: CISPLATIN
     Dosage: 100 MG, ONCE (CYCLE 3)
     Route: 042
     Dates: start: 20160816, end: 20160816
  3. CYTARABINE. [Concomitant]
     Active Substance: CYTARABINE
     Dosage: 2000 MG, BID (CYCLE 2)
     Route: 042
     Dates: start: 20160714, end: 20160714
  4. DEXAMETHASONE SODIUM PHOSPHATE. [Concomitant]
     Active Substance: DEXAMETHASONE SODIUM PHOSPHATE
     Dosage: 40 MG, ONCE
     Route: 042
     Dates: start: 20160713, end: 20160713
  5. CYTARABINE. [Concomitant]
     Active Substance: CYTARABINE
     Indication: CHEMOTHERAPY
     Dosage: 2000 MG, BID (CYCLE 1)
     Route: 042
     Dates: start: 20160616, end: 20160616
  6. DEXAMETHASONE SODIUM PHOSPHATE. [Concomitant]
     Active Substance: DEXAMETHASONE SODIUM PHOSPHATE
     Indication: PROPHYLAXIS OF NAUSEA AND VOMITING
     Dosage: 40 MG, ONCE
     Route: 042
     Dates: start: 20160615, end: 20160615
  7. DEXAMETHASONE SODIUM PHOSPHATE. [Concomitant]
     Active Substance: DEXAMETHASONE SODIUM PHOSPHATE
     Dosage: 40 MG, ONCE
     Route: 042
     Dates: start: 20160816, end: 20160816
  8. LASIX [Concomitant]
     Active Substance: FUROSEMIDE
     Indication: PROPHYLAXIS
     Dosage: 20 MG, QD
     Route: 042
     Dates: start: 20160615, end: 20160620
  9. EMEND (FOSAPREPITANT DIMEGLUMINE) [Suspect]
     Active Substance: FOSAPREPITANT DIMEGLUMINE
     Dosage: 150 MG, ONCE
     Route: 042
     Dates: start: 20160816, end: 20160816
  10. CISPLATIN. [Concomitant]
     Active Substance: CISPLATIN
     Dosage: 100 MG, ONCE (CYCLE 2)
     Route: 042
     Dates: start: 20160713, end: 20160713
  11. LASIX [Concomitant]
     Active Substance: FUROSEMIDE
     Dosage: 20 MG, ONCE
     Route: 042
     Dates: start: 20160816, end: 20160816
  12. CYTARABINE. [Concomitant]
     Active Substance: CYTARABINE
     Dosage: 2000 MG, BID (CYCLE 3)
     Route: 042
     Dates: start: 20160817, end: 20160817
  13. PANTOLINE TABLETS [Concomitant]
     Dosage: 1 TABLET, QD
     Route: 048
     Dates: start: 20160823, end: 20160830
  14. MUTERAN [Concomitant]
     Active Substance: ACETYLCYSTEINE
     Indication: PROPHYLAXIS
     Dosage: 1 CAPSULE, TID
     Route: 048
     Dates: start: 20160601, end: 20160712
  15. LASIX [Concomitant]
     Active Substance: FUROSEMIDE
     Dosage: 20 MG, ONCE
     Route: 042
     Dates: start: 20160713, end: 20160713
  16. EMEND (FOSAPREPITANT DIMEGLUMINE) [Suspect]
     Active Substance: FOSAPREPITANT DIMEGLUMINE
     Dosage: 150 MG, ONCE
     Route: 042
     Dates: start: 20160713, end: 20160713
  17. ALOXI [Concomitant]
     Active Substance: PALONOSETRON HYDROCHLORIDE
     Indication: PROPHYLAXIS OF NAUSEA AND VOMITING
     Dosage: 0.25 MG, ONCE
     Route: 042
     Dates: start: 20160615, end: 20160615
  18. ALOXI [Concomitant]
     Active Substance: PALONOSETRON HYDROCHLORIDE
     Dosage: 0.25 MG, ONCE
     Route: 042
     Dates: start: 20160816, end: 20160816
  19. FEROBA U [Concomitant]
     Indication: IRON DEFICIENCY ANAEMIA
     Dosage: 1 DF, BID
     Route: 048
  20. PANTOLINE TABLETS [Concomitant]
     Indication: PROPHYLAXIS
     Dosage: 1 TABLET, QD
     Route: 048
     Dates: start: 20160615, end: 20160627
  21. EMEND (FOSAPREPITANT DIMEGLUMINE) [Suspect]
     Active Substance: FOSAPREPITANT DIMEGLUMINE
     Indication: PROPHYLAXIS OF NAUSEA AND VOMITING
     Dosage: 150 MG, ONCE
     Route: 042
     Dates: start: 20160615, end: 20160615
  22. ALOXI [Concomitant]
     Active Substance: PALONOSETRON HYDROCHLORIDE
     Dosage: 0.25 MG, ONCE
     Route: 042
     Dates: start: 20160713, end: 20160713

REACTIONS (4)
  - Peripheral sensory neuropathy [Not Recovered/Not Resolved]
  - Asthenia [Recovered/Resolved]
  - Melaena [Recovered/Resolved]
  - Thrombocytopenia [Not Recovered/Not Resolved]

NARRATIVE: CASE EVENT DATE: 20160616
